FAERS Safety Report 5757097-6 (Version None)
Quarter: 2008Q2

REPORT INFORMATION
  Report Type: 
  Country: None (occurrence: None)
  Receive Date: 20080603
  Receipt Date: 20080530
  Transmission Date: 20081010
  Serious: Yes (Other)
  Sender: FDA-Public Use
  Company Number: D0057483A

PATIENT
  Sex: Female

DRUGS (1)
  1. ARIXTRA [Suspect]
     Dosage: 7.5ML PER DAY
     Route: 065

REACTIONS (2)
  - CEREBRAL HAEMORRHAGE [None]
  - COMPARTMENT SYNDROME [None]
